FAERS Safety Report 4612836-2 (Version None)
Quarter: 2005Q1

REPORT INFORMATION
  Report Type: 
  Country: None (occurrence: None)
  Receive Date: 20050318
  Receipt Date: 20050309
  Transmission Date: 20050727
  Serious: Yes (Hospitalization)
  Sender: FDA-Public Use
  Company Number: JP-JNJFOC-20050302281

PATIENT
  Sex: Male

DRUGS (2)
  1. TAVANIC [Suspect]
     Route: 049
  2. TAVANIC [Suspect]
     Indication: BRONCHITIS
     Route: 049

REACTIONS (1)
  - DYSPNOEA [None]
